FAERS Safety Report 9548412 (Version 1)
Quarter: 2013Q3

REPORT INFORMATION
  Report Type: Spontaneous
  Country: US (occurrence: None)
  Receive Date: 20130919
  Receipt Date: 20130919
  Transmission Date: 20140515
  Serious: Yes (Other)
  Sender: FDA-Public Use
  Company Number: DSU-2013-04559

PATIENT
  Sex: Female
  Weight: 74.84 kg

DRUGS (3)
  1. WELCHOL (COLESEVELAM HYDROCHLORIDE) (625 MILLIGRAM, TABLET) (COLESEVELAM HYDROCHLORIDE) [Suspect]
     Indication: HYPERCHOLESTEROLAEMIA
     Dosage: 3750 MG (3750 MG, QD), PER ORAL
     Route: 048
     Dates: start: 2012, end: 2012
  2. NIACIN (NICOTINIC ACID) (NICOTINIC ACID) [Concomitant]
  3. LOPID (GEMFIBROZIL) (GEMFIBROZIL) [Concomitant]

REACTIONS (2)
  - Sensation of heaviness [None]
  - Joint dislocation [None]
